FAERS Safety Report 18062507 (Version 1)
Quarter: 2020Q3

REPORT INFORMATION
  Report Type: Spontaneous
  Country: US (occurrence: US)
  Receive Date: 20200723
  Receipt Date: 20200723
  Transmission Date: 20201103
  Serious: No
  Sender: FDA-Public Use
  Company Number: US-IGSA-SR10009075

PATIENT
  Age: 78 Year
  Sex: Female
  Weight: 76.4 kg

DRUGS (1)
  1. GAMUNEX?C [Suspect]
     Active Substance: HUMAN IMMUNOGLOBULIN G
     Indication: PRODUCT USED FOR UNKNOWN INDICATION
     Dosage: 80 G, Q.3WK.
     Route: 042
     Dates: start: 201907, end: 201908

REACTIONS (2)
  - Depression [Unknown]
  - Asthenia [Unknown]

NARRATIVE: CASE EVENT DATE: 201907
